FAERS Safety Report 17079659 (Version 1)
Quarter: 2019Q4

REPORT INFORMATION
  Report Type: Spontaneous
  Country: US (occurrence: US)
  Receive Date: 20191029
  Receipt Date: 20191029
  Transmission Date: 20200122
  Serious: Yes (Hospitalization)
  Sender: FDA-Public Use
  Company Number: None

PATIENT
  Age: 51 Year
  Sex: Female

DRUGS (12)
  1. BREO ELLIPTA [Concomitant]
     Active Substance: FLUTICASONE FUROATE\VILANTEROL TRIFENATATE
  2. OMEPRAZOLE. [Concomitant]
     Active Substance: OMEPRAZOLE
  3. IPRATROPIUM [Concomitant]
     Active Substance: IPRATROPIUM
  4. MAG OX [Concomitant]
     Active Substance: MAGNESIUM OXIDE
  5. GABAPENTIN. [Concomitant]
     Active Substance: GABAPENTIN
  6. POT CHLOR [Concomitant]
  7. PREDNISONE. [Concomitant]
     Active Substance: PREDNISONE
  8. PROPAFENONE. [Concomitant]
     Active Substance: PROPAFENONE
  9. LEVOTHYROXIN [Concomitant]
     Active Substance: LEVOTHYROXINE
  10. XOLAIR [Suspect]
     Active Substance: OMALIZUMAB
     Indication: IDIOPATHIC URTICARIA
     Route: 058
     Dates: start: 20190924
  11. BUMETANIDE. [Concomitant]
     Active Substance: BUMETANIDE
  12. MIDODRINE [Concomitant]
     Active Substance: MIDODRINE

REACTIONS (2)
  - Infection [None]
  - Pulmonary oedema [None]

NARRATIVE: CASE EVENT DATE: 20191006
